FAERS Safety Report 8513100-1 (Version None)
Quarter: 2012Q3

REPORT INFORMATION
  Report Type: 
  Country: None (occurrence: None)
  Receive Date: 20120716
  Receipt Date: 20120711
  Transmission Date: 20120928
  Serious: No
  Sender: FDA-Public Use
  Company Number: US-AMGEN-USASP2012038335

PATIENT
  Age: 66 Year
  Sex: Female
  Weight: 60.317 kg

DRUGS (1)
  1. PROLIA [Suspect]
     Indication: OSTEOPOROSIS POSTMENOPAUSAL
     Dosage: UNK UNK, ONE TIME DOSE
     Dates: start: 20120312

REACTIONS (9)
  - MUSCULOSKELETAL PAIN [None]
  - ANAEMIA [None]
  - MOBILITY DECREASED [None]
  - ARTHROPATHY [None]
  - ARTHRALGIA [None]
  - LOW DENSITY LIPOPROTEIN INCREASED [None]
  - BACK PAIN [None]
  - MYALGIA [None]
  - PAIN IN EXTREMITY [None]
